FAERS Safety Report 6395275-6 (Version None)
Quarter: 2009Q4

REPORT INFORMATION
  Report Type: 
  Country: None (occurrence: None)
  Receive Date: 20091009
  Receipt Date: 20090929
  Transmission Date: 20100525
  Serious: Yes (Death, Hospitalization)
  Sender: FDA-Public Use
  Company Number: A0801992A

PATIENT
  Age: 52 Year
  Sex: Female

DRUGS (4)
  1. AVANDIA [Suspect]
     Dosage: 8MG PER DAY
     Route: 048
     Dates: start: 20020610, end: 20070517
  2. ZOCOR [Concomitant]
  3. METOPROLOL SUCCINATE [Concomitant]
  4. INSULIN [Concomitant]

REACTIONS (3)
  - CARDIAC ARREST [None]
  - CEREBRAL ISCHAEMIA [None]
  - WEIGHT INCREASED [None]
